FAERS Safety Report 8810150 (Version 1)
Quarter: 2012Q4

REPORT INFORMATION
  Report Type: Report from Study
  Country: UA (occurrence: UA)
  Receive Date: 20120926
  Receipt Date: 20120926
  Transmission Date: 20130627
  Serious: Yes (Hospitalization)
  Sender: FDA-Public Use
  Company Number: UA-PFIZER INC-2012236433

PATIENT
  Age: 51 Year
  Sex: Male

DRUGS (12)
  1. CISPLATIN [Suspect]
     Indication: METASTATIC GASTRIC CANCER
     Dosage: 158.4 mg, cyclic 1 in 21 days
     Route: 042
     Dates: start: 20120302, end: 20120823
  2. 5-FU [Suspect]
     Indication: METASTATIC GASTRIC CANCER
     Dosage: 7920 mg, cyclic 1 in 21 days
     Route: 042
     Dates: start: 20120302, end: 20120823
  3. SORBIFER DURULES [Concomitant]
     Indication: ANAEMIA
     Dosage: UNK
     Dates: start: 20120215
  4. PHOSPHOLIPIDS [Concomitant]
     Indication: PROPHYLAXIS
     Dosage: UNK
     Dates: start: 20120302
  5. NEUROBION [Concomitant]
     Indication: PROPHYLAXIS
     Dosage: UNK
     Dates: start: 20120302
  6. THYMALINUM [Concomitant]
     Indication: ASTHENIA
     Dosage: UNK
     Dates: start: 20120817, end: 20120822
  7. CLEMASTINE [Concomitant]
     Indication: PREMEDICATION
     Dosage: UNK
     Dates: start: 20120823, end: 20120823
  8. ONDANSETRON [Concomitant]
     Indication: PREMEDICATION
     Dosage: UNK
     Dates: start: 20120823, end: 20120823
  9. GLUCOSE [Concomitant]
     Dosage: UNK
     Dates: start: 20120823, end: 20120823
  10. SODIUM CHLORIDE [Concomitant]
     Dosage: UNK
     Dates: start: 20120823, end: 20120823
  11. KALIUM-MAGNESIUM-ASPARAGINAT [Concomitant]
     Indication: PROPHYLAXIS
     Dosage: UNK
     Dates: start: 20120823, end: 20120823
  12. LASIX [Concomitant]
     Indication: POLYURIA
     Dosage: UNK
     Dates: start: 20120823, end: 20120823

REACTIONS (1)
  - Gastric haemorrhage [Recovered/Resolved]
